FAERS Safety Report 15644739 (Version 1)
Quarter: 2018Q4

REPORT INFORMATION
  Report Type: Spontaneous
  Country: DE (occurrence: DE)
  Receive Date: 20181121
  Receipt Date: 20181121
  Transmission Date: 20190205
  Serious: Yes (Other)
  Sender: FDA-Public Use
  Company Number: DE-BAYER-2018-206892

PATIENT
  Sex: Male

DRUGS (3)
  1. GADOVIST [Suspect]
     Active Substance: GADOBUTROL
     Indication: NUCLEAR MAGNETIC RESONANCE IMAGING JOINT
     Dosage: UNK UNK, ONCE, LUMBAR SPINE, SACROILIAC JOINT
     Dates: start: 20180711, end: 20180711
  2. GADOVIST [Suspect]
     Active Substance: GADOBUTROL
     Indication: NUCLEAR MAGNETIC RESONANCE IMAGING SPINAL
     Dosage: 7 ML, ONCE, LATERAL THIGH
     Dates: start: 20180716, end: 20180716
  3. GADOVIST [Suspect]
     Active Substance: GADOBUTROL
     Indication: NUCLEAR MAGNETIC RESONANCE IMAGING

REACTIONS (3)
  - Paralysis [None]
  - Nontherapeutic agent blood positive [None]
  - Nontherapeutic agent urine positive [None]
